FAERS Safety Report 15531268 (Version 1)
Quarter: 2018Q4

REPORT INFORMATION
  Report Type: Report from Study
  Country: US (occurrence: US)
  Receive Date: 20181019
  Receipt Date: 20181019
  Transmission Date: 20190205
  Serious: Yes (Death, Other)
  Sender: FDA-Public Use
  Company Number: US-UCBSA-2018045465

PATIENT
  Age: 65 Year
  Sex: Male

DRUGS (4)
  1. LEVETIRACETAM. [Suspect]
     Active Substance: LEVETIRACETAM
     Dosage: 500 MG, 3X/WEEK
     Route: 048
     Dates: start: 20161219, end: 201804
  2. LEVETIRACETAM. [Suspect]
     Active Substance: LEVETIRACETAM
     Indication: MYOCLONIC EPILEPSY
     Dosage: 500 MG 2 PILLS A DAY, 4X/WEEK
     Route: 048
     Dates: start: 20161219, end: 201804
  3. LEVETIRACETAM. [Suspect]
     Active Substance: LEVETIRACETAM
     Dosage: 250 MG, 4X/WEEK; EVERY MONDAY, WEDNESDAY,FRIDAY AND SUNDAY
     Route: 048
     Dates: start: 20180423
  4. LEVETIRACETAM. [Suspect]
     Active Substance: LEVETIRACETAM
     Dosage: 750 MG, 3X/WEEK; EVERY TUESDAY, THURSDAY AND SATURDAY
     Route: 048
     Dates: start: 20180424

REACTIONS (3)
  - Off label use [Unknown]
  - Diabetic complication [Fatal]
  - Cardiac disorder [Fatal]

NARRATIVE: CASE EVENT DATE: 20161219
